FAERS Safety Report 6114900-8 (Version None)
Quarter: 2009Q1

REPORT INFORMATION
  Report Type: 
  Country: None (occurrence: None)
  Receive Date: 20090313
  Receipt Date: 20090306
  Transmission Date: 20090719
  Serious: Yes (Other)
  Sender: FDA-Public Use
  Company Number: PHHY2009FR08412

PATIENT
  Age: 53 Year
  Sex: Male

DRUGS (1)
  1. LAMISIL [Suspect]
     Dosage: 250MG PER DAY

REACTIONS (1)
  - BLOOD CREATINE PHOSPHOKINASE INCREASED [None]
